FAERS Safety Report 5415031-2 (Version None)
Quarter: 2007Q3

REPORT INFORMATION
  Report Type: 
  Country: None (occurrence: None)
  Receive Date: 20070815
  Receipt Date: 20070621
  Transmission Date: 20080115
  Serious: No
  Sender: FDA-Public Use
  Company Number: A0588387A

PATIENT
  Age: 66 Year
  Sex: Female

DRUGS (5)
  1. COREG CR [Suspect]
     Indication: HYPERTENSION
     Dosage: 80MG PER DAY
     Route: 048
     Dates: start: 20070601, end: 20070601
  2. COREG [Suspect]
     Dosage: 25MG TWICE PER DAY
     Route: 048
  3. ALTACE [Concomitant]
  4. ZETIA [Concomitant]
  5. LIPITOR [Concomitant]

REACTIONS (4)
  - ARTERIAL INSUFFICIENCY [None]
  - DIZZINESS [None]
  - NAUSEA [None]
  - PAIN IN EXTREMITY [None]
